FAERS Safety Report 20963803 (Version 1)
Quarter: 2022Q2

REPORT INFORMATION
  Report Type: Spontaneous
  Country: TR (occurrence: TR)
  Receive Date: 20220615
  Receipt Date: 20220615
  Transmission Date: 20220721
  Serious: Yes (Other)
  Sender: FDA-Public Use
  Company Number: TR-ZAMBON SWITZERLAND LTD.-2022TR000010

PATIENT

DRUGS (4)
  1. FOSFOMYCIN TROMETHAMINE [Suspect]
     Active Substance: FOSFOMYCIN TROMETHAMINE
     Indication: Urinary tract infection
     Dosage: UNK
  2. IMIPENEM [Concomitant]
     Active Substance: IMIPENEM
     Indication: Enterobacter bacteraemia
     Dosage: UNK
  3. TIGECYCLINE [Concomitant]
     Active Substance: TIGECYCLINE
     Indication: Enterobacter bacteraemia
     Dosage: UNK
  4. GENTAMICIN [Concomitant]
     Active Substance: GENTAMICIN
     Indication: Enterobacter bacteraemia
     Dosage: UNK

REACTIONS (3)
  - Hypokalaemia [Unknown]
  - Hypernatraemia [Unknown]
  - Hypokalaemia [Unknown]
